FAERS Safety Report 19907632 (Version 1)
Quarter: 2021Q4

REPORT INFORMATION
  Report Type: Report from Study
  Country: US (occurrence: US)
  Receive Date: 20211001
  Receipt Date: 20211001
  Transmission Date: 20220304
  Serious: Yes (Other)
  Sender: FDA-Public Use
  Company Number: US-ACTELION-A-NJ2019-191208

PATIENT
  Age: 39 Year
  Sex: Female
  Weight: 121.09 kg

DRUGS (6)
  1. OPSUMIT [Suspect]
     Active Substance: MACITENTAN
     Indication: Pulmonary arterial hypertension
     Dosage: 10 MG, QD
     Route: 048
     Dates: start: 20190226
  2. OPSUMIT [Suspect]
     Active Substance: MACITENTAN
     Route: 048
     Dates: start: 201903
  3. UPTRAVI [Suspect]
     Active Substance: SELEXIPAG
     Indication: Pulmonary arterial hypertension
     Dosage: 1000 MCG, BID
     Route: 048
  4. UPTRAVI [Suspect]
     Active Substance: SELEXIPAG
     Dosage: 400 MCG, BID
     Route: 048
  5. UPTRAVI [Suspect]
     Active Substance: SELEXIPAG
     Dosage: 200 MCG, BID
     Route: 048
     Dates: end: 202001
  6. REMODULIN [Suspect]
     Active Substance: TREPROSTINIL
     Indication: Product used for unknown indication
     Dosage: UNK
     Route: 065
     Dates: start: 202001

REACTIONS (15)
  - Endometrial cancer [Recovered/Resolved]
  - Unevaluable event [Unknown]
  - Pain [Unknown]
  - Adverse event [Unknown]
  - Therapy non-responder [Unknown]
  - Headache [Unknown]
  - Arthralgia [Unknown]
  - Myalgia [Unknown]
  - Pain in jaw [Unknown]
  - Haemodynamic test abnormal [Unknown]
  - Pain in extremity [Unknown]
  - Device leakage [Unknown]
  - Catheter placement [Unknown]
  - Catheter site pain [Unknown]
  - Catheter site infection [Unknown]

NARRATIVE: CASE EVENT DATE: 20190101
